FAERS Safety Report 23016322 (Version 1)
Quarter: 2023Q4

REPORT INFORMATION
  Report Type: Report from Study
  Country: ES (occurrence: ES)
  Receive Date: 20231002
  Receipt Date: 20231002
  Transmission Date: 20240110
  Serious: Yes (Hospitalization, Other)
  Sender: FDA-Public Use
  Company Number: ES-SHIRE-SPV1-2012-00670

PATIENT
  Age: 51 Year
  Sex: Female
  Weight: 53 kg

DRUGS (8)
  1. ICATIBANT [Suspect]
     Active Substance: ICATIBANT ACETATE
     Indication: Hereditary angioedema
     Dosage: UNK
     Route: 065
  2. ICATIBANT [Suspect]
     Active Substance: ICATIBANT ACETATE
     Indication: Hereditary angioedema
     Dosage: UNK
     Route: 065
  3. ICATIBANT [Suspect]
     Active Substance: ICATIBANT ACETATE
     Dosage: UNK
     Route: 065
     Dates: start: 20101220
  4. ICATIBANT [Suspect]
     Active Substance: ICATIBANT ACETATE
     Dosage: UNK
     Route: 065
     Dates: start: 20101220
  5. DICLOFENAC [Concomitant]
     Active Substance: DICLOFENAC
     Indication: Haematoma
     Dosage: 50 MILLIGRAM, TID
     Route: 048
     Dates: start: 20121023
  6. TRANEXAMIC ACID [Concomitant]
     Active Substance: TRANEXAMIC ACID
     Indication: Haematoma
     Dosage: 500 MILLIGRAM
     Route: 048
     Dates: start: 20121023
  7. ACETAMINOPHEN [Concomitant]
     Active Substance: ACETAMINOPHEN
     Dosage: 1 GRAM, TID
     Route: 048
     Dates: start: 20121128, end: 20121211
  8. ENOXAPARIN SODIUM [Concomitant]
     Active Substance: ENOXAPARIN SODIUM
     Indication: Prophylaxis
     Dosage: 40 MILLIGRAM, QD
     Route: 058
     Dates: start: 20121128, end: 20121205

REACTIONS (1)
  - Sternal fracture [Recovered/Resolved]

NARRATIVE: CASE EVENT DATE: 20110428
